FAERS Safety Report 8443252-3 (Version None)
Quarter: 2012Q2

REPORT INFORMATION
  Report Type: 
  Country: None (occurrence: None)
  Receive Date: 20120617
  Receipt Date: 20120611
  Transmission Date: 20120825
  Serious: Yes (Hospitalization)
  Sender: FDA-Public Use
  Company Number: US-TEVA-334125USA

PATIENT
  Sex: Female

DRUGS (1)
  1. CEPHALEXIN [Suspect]
     Indication: BRONCHITIS
     Dosage: 2000 MILLIGRAM; TOOK FOR THREE DAYS/WAS ORDERED FOR 10 DAYS
     Dates: start: 20110614

REACTIONS (5)
  - HEPATIC ENZYME INCREASED [None]
  - NAUSEA [None]
  - ABDOMINAL PAIN [None]
  - JAUNDICE [None]
  - VOMITING [None]
